FAERS Safety Report 11813282 (Version 1)
Quarter: 2015Q4

REPORT INFORMATION
  Report Type: Spontaneous
  Country: CA (occurrence: CA)
  Receive Date: 20151209
  Receipt Date: 20151209
  Transmission Date: 20160305
  Serious: Yes (Hospitalization)
  Sender: FDA-Public Use
  Company Number: CA-TEVA-613645ACC

PATIENT
  Sex: Male

DRUGS (1)
  1. INDOMETHACIN. [Suspect]
     Active Substance: INDOMETHACIN
     Indication: GOUT
     Dosage: 150 DOSAGE FORMS DAILY;
     Route: 048

REACTIONS (4)
  - Haemoglobin decreased [Unknown]
  - Occult blood positive [Unknown]
  - Fall [Unknown]
  - Syncope [Unknown]
